FAERS Safety Report 9278448 (Version 1)
Quarter: 2013Q2

REPORT INFORMATION
  Report Type: Spontaneous
  Country: DE (occurrence: DE)
  Receive Date: 20130508
  Receipt Date: 20130508
  Transmission Date: 20140414
  Serious: Yes (Congenital Anomaly)
  Sender: FDA-Public Use
  Company Number: DE-009507513-1305DEU001903

PATIENT
  Sex: Female
  Weight: 2.5 kg

DRUGS (3)
  1. INTRONA [Suspect]
     Indication: CHRONIC MYELOID LEUKAEMIA
     Dosage: 9 MIO(IE/D) INCREASING IN FREQUENCY FROM 3 TIMES PER WEEK TO 5 TIMES PER WEEK 4.5 OR 9 MIO IE/D
     Route: 064
     Dates: start: 20120501, end: 20121129
  2. FOLVERLAN [Concomitant]
     Indication: PROPHYLAXIS OF NEURAL TUBE DEFECT
     Dosage: 0.4MG/D
     Route: 064
     Dates: start: 20120321, end: 20121030
  3. ACETAMINOPHEN [Concomitant]
     Indication: PYREXIA
     Dosage: 500MG/D
     Route: 064

REACTIONS (6)
  - Ventricular septal defect [Unknown]
  - Premature baby [Recovered/Resolved]
  - Atrial septal defect [Unknown]
  - Foetal exposure during pregnancy [Unknown]
  - Foetal exposure during pregnancy [Unknown]
  - Foetal exposure during pregnancy [Recovered/Resolved]
